FAERS Safety Report 7904920-2 (Version None)
Quarter: 2011Q4

REPORT INFORMATION
  Report Type: 
  Country: None (occurrence: None)
  Receive Date: 20111109
  Receipt Date: 20111102
  Transmission Date: 20120403
  Serious: Yes (Other)
  Sender: FDA-Public Use
  Company Number: PHEH2011US008609

PATIENT
  Sex: Female

DRUGS (9)
  1. LORAZEPAM [Concomitant]
     Dosage: UNK UKN, UNK
     Dates: start: 20110919
  2. TRAZODONE HYDROCHLORIDE [Concomitant]
     Dosage: UNK UKN, UNK
     Dates: start: 20110916
  3. ALPRAZOLAM [Concomitant]
     Dosage: UNK UKN, UNK
     Dates: start: 20110908
  4. FLUOXETINE HCL [Concomitant]
     Dosage: UNK UKN, UNK
     Dates: start: 20110721
  5. TRAZODONE HYDROCHLORIDE [Concomitant]
     Dosage: UNK UKN, UNK
     Dates: start: 20100910
  6. FLUOXETINE HCL [Concomitant]
     Dosage: UNK UKN, UNK
     Dates: start: 20110316
  7. COPAXONE [Concomitant]
     Dosage: 20 MG, DAILY
     Dates: start: 20101029
  8. GILENYA [Suspect]
     Indication: MULTIPLE SCLEROSIS
     Dosage: 0.5 MG, QD
     Route: 048
     Dates: start: 20111011
  9. OXYCODONE HCL [Concomitant]
     Dosage: UNK UKN, UNK
     Dates: start: 20110831

REACTIONS (7)
  - EAR PAIN [None]
  - RESPIRATORY DISORDER [None]
  - CHILLS [None]
  - INFLUENZA LIKE ILLNESS [None]
  - BALANCE DISORDER [None]
  - PYREXIA [None]
  - TRANSIENT ISCHAEMIC ATTACK [None]
